FAERS Safety Report 21909292 (Version 1)
Quarter: 2023Q1

REPORT INFORMATION
  Report Type: Spontaneous
  Country: US (occurrence: US)
  Receive Date: 20230125
  Receipt Date: 20230125
  Transmission Date: 20230417
  Serious: No
  Sender: FDA-Public Use
  Company Number: US-FERAPHARMA-2022-US-022907

PATIENT
  Age: 79 Year
  Sex: Female
  Weight: 63.5 kg

DRUGS (3)
  1. KEFLEX [Suspect]
     Active Substance: CEPHALEXIN
     Indication: Pharyngitis streptococcal
     Dosage: 500MG THREE TIMES A DAY BY MOUTH
     Route: 048
  2. VITAMIN D3 [Concomitant]
     Active Substance: CHOLECALCIFEROL
     Dosage: 1000MG
     Route: 065
  3. VITAMIN C [Concomitant]
     Active Substance: ASCORBIC ACID
     Dosage: 1000MG
     Route: 065

REACTIONS (1)
  - Drug ineffective [Unknown]
